FAERS Safety Report 4942044-7 (Version None)
Quarter: 2006Q1

REPORT INFORMATION
  Report Type: 
  Country: None (occurrence: None)
  Receive Date: 20060313
  Receipt Date: 20050502
  Transmission Date: 20060701
  Serious: No
  Sender: FDA-Public Use
  Company Number: US-GLAXOSMITHKLINE-A0556818A

PATIENT
  Age: 49 Year
  Sex: Female

DRUGS (1)
  1. NICORETTE [Suspect]
     Dates: start: 20050426, end: 20050427

REACTIONS (6)
  - DISSOCIATION [None]
  - DIZZINESS [None]
  - GINGIVAL BLEEDING [None]
  - HEADACHE [None]
  - MALAISE [None]
  - NAUSEA [None]
